FAERS Safety Report 25684863 (Version 1)
Quarter: 2025Q3

REPORT INFORMATION
  Report Type: Spontaneous
  Country: AU (occurrence: AU)
  Receive Date: 20250815
  Receipt Date: 20250815
  Transmission Date: 20251021
  Serious: Yes (Hospitalization, Other)
  Sender: STRIDES
  Company Number: AU-STRIDES ARCOLAB LIMITED-2025SP010229

PATIENT

DRUGS (4)
  1. PREDNISONE [Suspect]
     Active Substance: PREDNISONE
     Indication: Insulinoma
     Route: 065
  2. PREDNISONE [Suspect]
     Active Substance: PREDNISONE
     Indication: Hyperinsulinaemic hypoglycaemia
  3. DIAZOXIDE [Concomitant]
     Active Substance: DIAZOXIDE
     Indication: Insulinoma
     Route: 065
  4. DIAZOXIDE [Concomitant]
     Active Substance: DIAZOXIDE
     Indication: Hyperinsulinaemic hypoglycaemia
     Route: 065

REACTIONS (2)
  - Disease progression [Recovering/Resolving]
  - Off label use [Unknown]
